FAERS Safety Report 5524250-6 (Version None)
Quarter: 2007Q4

REPORT INFORMATION
  Report Type: 
  Country: None (occurrence: None)
  Receive Date: 20071121
  Receipt Date: 20071112
  Transmission Date: 20080405
  Serious: Yes (Hospitalization)
  Sender: FDA-Public Use
  Company Number: FR-PFIZER INC-2007094957

PATIENT
  Sex: Female

DRUGS (8)
  1. XANAX [Suspect]
     Indication: ANXIETY
     Dates: start: 20070801, end: 20070815
  2. ALBUTEROL [Suspect]
     Indication: TOCOLYSIS
     Dates: start: 20070730, end: 20070730
  3. TRACTOCILE [Suspect]
     Indication: TOCOLYSIS
     Dates: start: 20070730, end: 20070801
  4. NICARDIPINE HYDROCHLORIDE [Suspect]
     Indication: TOCOLYSIS
     Dates: start: 20070801, end: 20070808
  5. SPASFON [Suspect]
     Indication: ABDOMINAL PAIN
     Dates: start: 20070801, end: 20070808
  6. CELESTONE [Suspect]
     Indication: MATERNAL THERAPY TO ENHANCE FOETAL LUNG MATURITY
     Dates: start: 20070730, end: 20070801
  7. ATARAX [Concomitant]
     Indication: ANXIETY
     Dates: start: 20070801, end: 20070815
  8. OXAZEPAM [Concomitant]
     Indication: ANXIETY
     Dates: start: 20070801, end: 20070816

REACTIONS (2)
  - DRUG EXPOSURE DURING PREGNANCY [None]
  - DUCTUS ARTERIOSUS PREMATURE CLOSURE [None]
